FAERS Safety Report 5023000-X (Version None)
Quarter: 2006Q2

REPORT INFORMATION
  Report Type: 
  Country: None (occurrence: None)
  Receive Date: 20060426
  Receipt Date: 20060203
  Transmission Date: 20061013
  Serious: Yes (Other)
  Sender: FDA-Public Use
  Company Number: 2006018192

PATIENT
  Age: 50 Year
  Sex: Male

DRUGS (16)
  1. LYRICA [Suspect]
     Indication: DIABETIC NEUROPATHY
     Dosage: 150 MG (75 MG, 2 IN 1 D), ORAL
     Route: 048
     Dates: start: 20050101
  2. NEURONTIN [Suspect]
     Indication: DIABETIC NEUROPATHY
     Dosage: 1200 MG (400 MG, 3 IN 1 D), ORAL
     Route: 048
  3. POTASSIUM (POTASSIUM) [Concomitant]
  4. AMARYL [Concomitant]
  5. ACTOS [Concomitant]
  6. COREG [Concomitant]
  7. FUROSEMIDE [Concomitant]
  8. CLONIDINE [Concomitant]
  9. CADUET [Concomitant]
  10. HYZAAR [Concomitant]
  11. PLAVIX [Concomitant]
  12. METFORMIN [Concomitant]
  13. TAMSULOSIN HCL [Concomitant]
  14. ASPIRIN [Concomitant]
  15. LANTUS [Concomitant]
  16. METOLAZONE [Concomitant]

REACTIONS (6)
  - DRUG INEFFECTIVE [None]
  - DRY MOUTH [None]
  - PAIN IN EXTREMITY [None]
  - SOMNOLENCE [None]
  - SWELLING [None]
  - WEIGHT INCREASED [None]
